FAERS Safety Report 10196811 (Version 1)
Quarter: 2014Q2

REPORT INFORMATION
  Report Type: Spontaneous
  Country: CH (occurrence: CH)
  Receive Date: 20140527
  Receipt Date: 20140527
  Transmission Date: 20141212
  Serious: Yes (Hospitalization)
  Sender: FDA-Public Use
  Company Number: CH-PFIZER INC-2014138657

PATIENT
  Age: 35 Year
  Sex: Female
  Weight: 61 kg

DRUGS (4)
  1. ZITHROMAX [Suspect]
     Indication: ACUTE TONSILLITIS
     Dosage: 500 MG, 1X/DAY
     Route: 048
     Dates: start: 20140402, end: 20140402
  2. ALGIFOR [Suspect]
     Indication: PHARYNGITIS
     Dosage: 200 MG, UNK
     Dates: start: 20140330, end: 20140403
  3. ALGIFOR [Suspect]
     Indication: PYREXIA
  4. ALGIFOR [Suspect]
     Indication: UPPER RESPIRATORY TRACT INFECTION

REACTIONS (4)
  - Erythema multiforme [Recovered/Resolved]
  - Conjunctivitis [Recovered/Resolved]
  - Rash maculo-papular [Recovered/Resolved]
  - Oral disorder [Recovered/Resolved]
